FAERS Safety Report 8534273-0 (Version None)
Quarter: 2012Q3

REPORT INFORMATION
  Report Type: 
  Country: None (occurrence: None)
  Receive Date: 20120711
  Receipt Date: 20110728
  Transmission Date: 20120928
  Serious: Yes (Other)
  Sender: FDA-Public Use
  Company Number: 2011-05782

PATIENT
  Age: 41 Year
  Sex: Female

DRUGS (3)
  1. VITAMIN TAB [Concomitant]
  2. IMOVAX RABIES I.D. [Suspect]
     Indication: PRODUCT USED FOR UNKNOWN INDICATION
     Dates: start: 20110726, end: 20110726
  3. IMOGAM RABIES-HT [Suspect]
     Indication: IMMUNISATION
     Dates: start: 20110726, end: 20110726

REACTIONS (1)
  - MYALGIA [None]
